FAERS Safety Report 7671138-0 (Version None)
Quarter: 2011Q3

REPORT INFORMATION
  Report Type: 
  Country: None (occurrence: None)
  Receive Date: 20110803
  Receipt Date: 20110720
  Transmission Date: 20111222
  Serious: Yes (Other)
  Sender: FDA-Public Use
  Company Number: 2011MA009546

PATIENT
  Age: 37 Year
  Sex: Female

DRUGS (4)
  1. MONTELUKAST SODIUM [Suspect]
     Dosage: 10 MG; ORAL
     Route: 048
     Dates: start: 20070101
  2. IPRATROPIUM BROMIDE [Suspect]
     Indication: ASTHMA
  3. XOLAIR [Suspect]
     Indication: ASTHMA
     Dosage: 300 MG; QM; SC
     Route: 058
  4. SERETIDE (NO PREF. NAME) [Suspect]
     Indication: ASTHMA
     Dates: start: 20050101

REACTIONS (5)
  - TRANSIENT ISCHAEMIC ATTACK [None]
  - DYSAESTHESIA [None]
  - HEADACHE [None]
  - HEMIPARESIS [None]
  - SENSORY DISTURBANCE [None]
